FAERS Safety Report 6675060-8 (Version None)
Quarter: 2010Q2

REPORT INFORMATION
  Report Type: 
  Country: None (occurrence: None)
  Receive Date: 20100409
  Receipt Date: 20100401
  Transmission Date: 20101027
  Serious: Yes (Other)
  Sender: FDA-Public Use
  Company Number: US-BAYER-201013840BCC

PATIENT
  Age: 63 Year
  Sex: Female
  Weight: 82 kg

DRUGS (4)
  1. ASPIRIN [Suspect]
     Indication: HEADACHE
     Dosage: AS USED: 325 MG  UNIT DOSE: 325 MG
     Route: 048
     Dates: start: 20080101, end: 20080101
  2. OMEPRAZOLE [Concomitant]
  3. TAGAMET [Concomitant]
  4. ACETAMINOPHEN [Concomitant]

REACTIONS (3)
  - DIZZINESS [None]
  - HYPERHIDROSIS [None]
  - SYNCOPE [None]
